FAERS Safety Report 10349408 (Version 4)
Quarter: 2014Q3

REPORT INFORMATION
  Report Type: Spontaneous
  Country: US (occurrence: US)
  Receive Date: 20140730
  Receipt Date: 20140827
  Transmission Date: 20150326
  Serious: No
  Sender: FDA-Public Use
  Company Number: US-AMGEN-USASP2014056922

PATIENT
  Age: 68 Year
  Sex: Female
  Weight: 86.98 kg

DRUGS (32)
  1. TESTOSTERONE. [Concomitant]
     Active Substance: TESTOSTERONE
     Dosage: 1 G, DAILY
     Route: 062
     Dates: start: 20140620
  2. LUMIGAN [Concomitant]
     Active Substance: BIMATOPROST
     Dosage: 0.01 %, ONCE DAILY
     Route: 047
     Dates: start: 20130423
  3. PROGESTERONE. [Concomitant]
     Active Substance: PROGESTERONE
     Dosage: 2 25 MG,TABLETS DAILY
     Route: 048
     Dates: start: 20140620
  4. VANIQA                             /00936001/ [Concomitant]
     Dosage: UNK
     Dates: start: 20130916
  5. BENICAR [Concomitant]
     Active Substance: OLMESARTAN MEDOXOMIL
     Dosage: 40 MG, DAILY
     Route: 048
     Dates: start: 20130730
  6. CELEBREX [Concomitant]
     Active Substance: CELECOXIB
     Dosage: 200 MG, 1 CASPUSLE; TWICE DAILY
     Route: 048
     Dates: start: 20111103
  7. ESTRADIOL. [Concomitant]
     Active Substance: ESTRADIOL
     Dosage: 0.75 MG, PATCH WEEKLY
     Route: 062
     Dates: start: 20120413
  8. ASPIRIN                            /00002701/ [Concomitant]
     Active Substance: ASPIRIN
     Dosage: 81 MG, DAILY
     Route: 048
     Dates: start: 20110920
  9. BENEFIBER                          /00677201/ [Concomitant]
     Dosage: UNK UNK, AS NECESSARY
     Dates: start: 20130423
  10. HYDROCORTISONE. [Concomitant]
     Active Substance: HYDROCORTISONE
     Dosage: 1 %, EXTERNAL CREAM
     Route: 061
     Dates: start: 20140716
  11. OMEPRAZOLE. [Concomitant]
     Active Substance: OMEPRAZOLE
     Dosage: 40 MG, 1 CAPSULE DAILY
     Route: 048
     Dates: start: 20140701
  12. AMLODIPINE BESILATE [Concomitant]
     Active Substance: AMLODIPINE BESYLATE
     Dosage: 2.5 MG, DAILY
     Route: 048
     Dates: start: 20130730
  13. DOXAZOSIN MESILATE [Concomitant]
     Active Substance: DOXAZOSIN MESYLATE
     Dosage: 4 MG, 1 TABLET TWICE DAILY
     Route: 048
     Dates: start: 20140228
  14. FOLIC ACID. [Concomitant]
     Active Substance: FOLIC ACID
     Dosage: 1 MG, 2 TABLET DAILY
     Route: 048
     Dates: start: 20140811
  15. ASTEPRO [Concomitant]
     Active Substance: AZELASTINE HYDROCHLORIDE
     Dosage: DAILY
     Dates: start: 20130128
  16. AZASITE [Concomitant]
     Active Substance: AZITHROMYCIN MONOHYDRATE
     Dosage: UNK, DAILY
     Dates: start: 20130911
  17. COMBIGAN [Concomitant]
     Active Substance: BRIMONIDINE TARTRATE\TIMOLOL MALEATE
     Dosage: 0.2-0.5 %, 1 DROP TWICE DAILY
     Dates: start: 20130912
  18. HYDROMORPHONE HCL [Concomitant]
     Active Substance: HYDROMORPHONE HYDROCHLORIDE
     Indication: PAIN
     Dosage: 4 MG, 1-2 TABLET AS NEEDED
     Route: 048
     Dates: start: 20140307
  19. MILK OF MAGNESIA [Concomitant]
     Active Substance: MAGNESIUM HYDROXIDE
     Dosage: 500 MG, TWICE DAILY
     Dates: start: 20111103
  20. SPIRONOLACTONE. [Concomitant]
     Active Substance: SPIRONOLACTONE
     Dosage: 25 MG, 1 TABLET EVERY OTHER DAY
     Route: 048
     Dates: start: 20140227
  21. ENBREL [Suspect]
     Active Substance: ETANERCEPT
     Indication: RHEUMATOID ARTHRITIS
     Dosage: 50 MG, QWK
     Route: 058
     Dates: start: 20140716
  22. CARVEDILOL. [Concomitant]
     Active Substance: CARVEDILOL
     Dosage: 12.5 MG, 1 TABLET TWICE DAILY
     Route: 048
     Dates: start: 20140714
  23. EXALGO [Concomitant]
     Active Substance: HYDROMORPHONE HYDROCHLORIDE
     Dosage: 8 MG, DAILY
     Route: 048
     Dates: start: 20140505
  24. TRAZODONE HYDROCHLORIDE. [Concomitant]
     Active Substance: TRAZODONE HYDROCHLORIDE
     Dosage: 50 MG, TAKE 0.5 TABLET BED TIME
     Route: 048
     Dates: start: 20130610
  25. VOLTAREN [Concomitant]
     Active Substance: DICLOFENAC SODIUM
     Dosage: UNK
     Route: 062
     Dates: start: 20140716
  26. CLOBETASOL [Concomitant]
     Active Substance: CLOBETASOL
     Indication: ECZEMA
     Dosage: 0.5 %, AS NECESSARY TWICE DAILY
     Dates: start: 20130916
  27. METHOTREXATE [Concomitant]
     Active Substance: METHOTREXATE
     Dosage: 2.5 MG, 4 TABLETS WEEKLY
     Route: 048
     Dates: start: 20140811
  28. OSCAL                              /00514701/ [Concomitant]
     Dosage: 500-200 MG 1 TABLET DAILY
     Route: 048
     Dates: start: 20130816
  29. QNASL [Concomitant]
     Active Substance: BECLOMETHASONE DIPROPIONATE
     Dosage: 80 MUG, 2 SPRAYS QNOSTRIL DAILY
     Dates: start: 20121022
  30. STOOL SOFTENER [Concomitant]
     Active Substance: DOCUSATE CALCIUM
     Dosage: 250 MG, 3 CAPSULES DAILY
     Route: 048
     Dates: start: 20140716
  31. CLONAZEPAM. [Concomitant]
     Active Substance: CLONAZEPAM
     Indication: BLOOD PRESSURE
     Dosage: 0.5 MG, AS NECESSARY THREE TIMES DAILY
     Dates: start: 20140619
  32. TEARS AGAIN HYDRATE [Concomitant]
     Active Substance: BILBERRY\LINSEED OIL\OENOTHERA BIENNIS (EVENING PRIMROSE) SEED EXTRACT
     Dosage: 1 CAPSULE 4 TIMES DAILY
     Route: 048
     Dates: start: 20140422

REACTIONS (5)
  - Drug ineffective [Not Recovered/Not Resolved]
  - Hyperhidrosis [Not Recovered/Not Resolved]
  - Injection site pain [Not Recovered/Not Resolved]
  - Injection site erythema [Not Recovered/Not Resolved]
  - Injection site reaction [Not Recovered/Not Resolved]

NARRATIVE: CASE EVENT DATE: 201407
